FAERS Safety Report 19960782 (Version 1)
Quarter: 2021Q4

REPORT INFORMATION
  Report Type: Spontaneous
  Country: FR (occurrence: FR)
  Receive Date: 20211016
  Receipt Date: 20211016
  Transmission Date: 20220303
  Serious: Yes (Death, Hospitalization)
  Sender: FDA-Public Use
  Company Number: None

PATIENT
  Age: 67 Year
  Sex: Male

DRUGS (1)
  1. XELODA [Suspect]
     Active Substance: CAPECITABINE
     Indication: Mixed hepatocellular cholangiocarcinoma
     Route: 048
     Dates: start: 20210705, end: 20210716

REACTIONS (3)
  - Mucosal inflammation [Fatal]
  - Diarrhoea [Fatal]
  - Bicytopenia [Fatal]

NARRATIVE: CASE EVENT DATE: 20210716
